FAERS Safety Report 19586705 (Version 1)
Quarter: 2021Q3

REPORT INFORMATION
  Report Type: Spontaneous
  Country: FR (occurrence: FR)
  Receive Date: 20210721
  Receipt Date: 20210721
  Transmission Date: 20211014
  Serious: Yes (Hospitalization)
  Sender: FDA-Public Use
  Company Number: FR-JNJFOC-20210742436

PATIENT
  Age: 85 Year
  Sex: Male
  Weight: 89 kg

DRUGS (8)
  1. ACIDE FOLIQUE [Concomitant]
     Active Substance: FOLIC ACID
  2. BIPRETERAX N [Suspect]
     Active Substance: INDAPAMIDE\PERINDOPRIL ARGININE
     Indication: HYPERTENSION
     Route: 048
     Dates: end: 20210609
  3. LEVOTHYROX [Concomitant]
     Active Substance: LEVOTHYROXINE
  4. XARELTO [Suspect]
     Active Substance: RIVAROXABAN
     Indication: ATRIAL FIBRILLATION
     Route: 048
     Dates: end: 20210609
  5. ESIDREX [Suspect]
     Active Substance: HYDROCHLOROTHIAZIDE
     Indication: HYPERTENSION
     Route: 048
     Dates: end: 20210609
  6. AMIODARONE [Suspect]
     Active Substance: AMIODARONE
     Indication: ATRIAL FIBRILLATION
     Route: 048
     Dates: end: 20210614
  7. IMPORTAL [Suspect]
     Active Substance: LACTITOL
     Indication: CONSTIPATION
     Route: 048
     Dates: end: 20210609
  8. PERMIXON [Concomitant]
     Active Substance: HERBALS\SAW PALMETTO

REACTIONS (1)
  - Eosinophilic pneumonia [Recovering/Resolving]

NARRATIVE: CASE EVENT DATE: 20210608
